FAERS Safety Report 9259008 (Version 2)
Quarter: 2013Q2

REPORT INFORMATION
  Report Type: Report from Study
  Country: IT (occurrence: IT)
  Receive Date: 20130426
  Receipt Date: 20130617
  Transmission Date: 20140414
  Serious: Yes (Hospitalization)
  Sender: FDA-Public Use
  Company Number: IT-ABBOTT-13P-083-1078546-00

PATIENT
  Age: 37 Year
  Sex: Female
  Weight: 72 kg

DRUGS (1)
  1. HUMIRA [Suspect]
     Indication: COLITIS ULCERATIVE
     Route: 058
     Dates: start: 20090721

REACTIONS (1)
  - Anal fistula [Not Recovered/Not Resolved]
